FAERS Safety Report 5940646-2 (Version None)
Quarter: 2008Q4

REPORT INFORMATION
  Report Type: 
  Country: None (occurrence: None)
  Receive Date: 20081103
  Receipt Date: 20081103
  Transmission Date: 20090506
  Serious: Yes (Other)
  Sender: FDA-Public Use
  Company Number: None

PATIENT
  Age: 38 Year
  Sex: Female
  Weight: 84.369 kg

DRUGS (1)
  1. LYRICA [Suspect]
     Indication: FIBROMYALGIA
     Dosage: 50MG 2 DAILY MORNING AND EVENING

REACTIONS (4)
  - BURNING SENSATION [None]
  - GINGIVAL PAIN [None]
  - GINGIVAL SWELLING [None]
  - TRISMUS [None]
